FAERS Safety Report 7485053-9 (Version None)
Quarter: 2011Q2

REPORT INFORMATION
  Report Type: 
  Country: None (occurrence: None)
  Receive Date: 20110517
  Receipt Date: 20101105
  Transmission Date: 20111010
  Serious: No
  Sender: FDA-Public Use
  Company Number: US-BAYER-201023581BCC

PATIENT
  Age: 49 Year
  Sex: Female
  Weight: 86.364 kg

DRUGS (1)
  1. NAPROXEN (ALEVE) [Suspect]
     Indication: TOOTHACHE
     Dosage: DAILY DOSE 2200 MG
     Route: 048
     Dates: start: 20101104

REACTIONS (2)
  - VOMITING [None]
  - ABDOMINAL DISCOMFORT [None]
